FAERS Safety Report 4588325-0 (Version None)
Quarter: 2005Q1

REPORT INFORMATION
  Report Type: 
  Country: None (occurrence: None)
  Receive Date: 20050216
  Receipt Date: 20050201
  Transmission Date: 20050727
  Serious: Yes (Other)
  Sender: FDA-Public Use
  Company Number: 8008676

PATIENT
  Age: 30 Year
  Sex: Female

DRUGS (5)
  1. KEPPRA [Suspect]
     Indication: EPILEPSY
     Dosage: 500 MG 2/D PO
     Route: 048
     Dates: start: 20040311, end: 20040420
  2. LABETALOL HCL [Concomitant]
  3. NEORAL [Concomitant]
  4. PREDNISOLONE [Concomitant]
  5. NEXIUM [Concomitant]

REACTIONS (1)
  - THROMBOCYTOPENIA [None]
